FAERS Safety Report 7213128-8 (Version None)
Quarter: 2011Q1

REPORT INFORMATION
  Report Type: 
  Country: None (occurrence: None)
  Receive Date: 20110106
  Receipt Date: 20101223
  Transmission Date: 20110831
  Serious: Yes (Other)
  Sender: FDA-Public Use
  Company Number: PHHY2010US89020

PATIENT

DRUGS (1)
  1. GLEEVEC [Suspect]
     Indication: CHRONIC MYELOID LEUKAEMIA
     Dosage: 400 MG, QD
     Route: 048
     Dates: start: 20100929, end: 20101217

REACTIONS (4)
  - SUICIDAL IDEATION [None]
  - INSOMNIA [None]
  - MOTOR DYSFUNCTION [None]
  - CONFUSIONAL STATE [None]
